FAERS Safety Report 25212195 (Version 1)
Quarter: 2025Q2

REPORT INFORMATION
  Report Type: Spontaneous
  Country: CN (occurrence: CN)
  Receive Date: 20250418
  Receipt Date: 20250418
  Transmission Date: 20250716
  Serious: Yes (Hospitalization)
  Sender: JIANGSU HENGRUI
  Company Number: CN-JIANGSU HENGRUI PHARMACEUTICALS CO., LTD.-H2025210932

PATIENT
  Age: 70 Year
  Weight: 55 kg

DRUGS (5)
  1. PACLITAXEL [Suspect]
     Active Substance: PACLITAXEL
     Indication: Cardiac neoplasm malignant
  2. IPAROMLIMAB [Suspect]
     Active Substance: IPAROMLIMAB
     Indication: Cardiac neoplasm malignant
  3. BEVACIZUMAB [Suspect]
     Active Substance: BEVACIZUMAB
     Indication: Cardiac neoplasm malignant
  4. SODIUM CHLORIDE [Concomitant]
     Active Substance: SODIUM CHLORIDE
     Indication: Vehicle solution use
  5. TUVONRALIMAB [Suspect]
     Active Substance: TUVONRALIMAB

REACTIONS (6)
  - Cardiac failure acute [Unknown]
  - White blood cell count decreased [Unknown]
  - Febrile neutropenia [Unknown]
  - Platelet count decreased [Unknown]
  - Myelosuppression [Unknown]
  - Hepatic function abnormal [Unknown]
